FAERS Safety Report 5247402-1 (Version None)
Quarter: 2007Q1

REPORT INFORMATION
  Report Type: 
  Country: None (occurrence: None)
  Receive Date: 20070223
  Receipt Date: 20070223
  Transmission Date: 20070707
  Serious: No
  Sender: FDA-Public Use
  Company Number: None

PATIENT
  Age: 71 Year
  Sex: Female

DRUGS (2)
  1. SODIUM CHLORIDE [Suspect]
     Indication: ASTHMA
     Dosage: 1 LITER  3.5 HOURS  IV
     Route: 042
     Dates: start: 20070216, end: 20070221
  2. SODIUM CHLORIDE [Suspect]
     Indication: DYSPNOEA
     Dosage: 1 LITER  3.5 HOURS  IV
     Route: 042
     Dates: start: 20070216, end: 20070221

REACTIONS (3)
  - DEVICE MALFUNCTION [None]
  - INCORRECT DRUG ADMINISTRATION DURATION [None]
  - MEDICATION ERROR [None]
